FAERS Safety Report 4862336-X (Version None)
Quarter: 2005Q4

REPORT INFORMATION
  Report Type: 
  Country: None (occurrence: None)
  Receive Date: 20051221
  Receipt Date: 20051209
  Transmission Date: 20060501
  Serious: Yes (Other)
  Sender: FDA-Public Use
  Company Number: CA-BRISTOL-MYERS SQUIBB COMPANY-13218268

PATIENT
  Age: 83 Year
  Sex: Male

DRUGS (10)
  1. TEQUIN [Suspect]
     Route: 048
  2. GLYBURIDE [Suspect]
     Route: 048
  3. ADVAIR DISKUS 100/50 [Concomitant]
  4. ASPIRIN [Concomitant]
  5. FUROSEMIDE [Concomitant]
  6. LIPITOR [Concomitant]
  7. RAMIPRIL [Concomitant]
  8. SALBUTAMOL [Concomitant]
  9. SEPTRA DS [Concomitant]
  10. SPIRONOLACTONE [Concomitant]

REACTIONS (2)
  - HYPERGLYCAEMIA [None]
  - HYPOGLYCAEMIA [None]
